FAERS Safety Report 9846414 (Version 1)
Quarter: 2014Q1

REPORT INFORMATION
  Report Type: Spontaneous
  Country: GB (occurrence: GB)
  Receive Date: 20140127
  Receipt Date: 20140127
  Transmission Date: 20141002
  Serious: Yes (Hospitalization, Other)
  Sender: FDA-Public Use
  Company Number: PHFR2014GB000828

PATIENT
  Sex: Female

DRUGS (2)
  1. VOLTAROL [Suspect]
     Indication: ARTHRALGIA
     Dosage: (2-3 TIMES A DAY)
     Route: 061
  2. ASPIRIN [Concomitant]
     Dosage: UNK UKN, UNK
     Route: 048

REACTIONS (6)
  - Hypertension [Unknown]
  - Dizziness [Unknown]
  - Burning sensation [Unknown]
  - Underdose [Unknown]
  - Arthralgia [Unknown]
  - Incorrect drug administration duration [Unknown]
